FAERS Safety Report 15717249 (Version 1)
Quarter: 2018Q4

REPORT INFORMATION
  Report Type: Spontaneous
  Country: AU (occurrence: AU)
  Receive Date: 20181213
  Receipt Date: 20181213
  Transmission Date: 20190205
  Serious: Yes (Other)
  Sender: FDA-Public Use
  Company Number: AU-TEVA-2018-AU-986325

PATIENT
  Age: 43 Year

DRUGS (3)
  1. FLUDARABINE [Suspect]
     Active Substance: FLUDARABINE PHOSPHATE
     Route: 065
  2. FILGRASTIM [Suspect]
     Active Substance: FILGRASTIM
     Route: 065
  3. IDARUBICIN [Suspect]
     Active Substance: IDARUBICIN
     Route: 065

REACTIONS (1)
  - Neutropenia [Unknown]
